FAERS Safety Report 9714481 (Version 1)
Quarter: 2013Q4

REPORT INFORMATION
  Report Type: Spontaneous
  Country: US (occurrence: US)
  Receive Date: 20131126
  Receipt Date: 20131126
  Transmission Date: 20140711
  Serious: No
  Sender: FDA-Public Use
  Company Number: US-BIOGENIDEC-2013BI085197

PATIENT
  Age: 62 Year
  Sex: Female

DRUGS (10)
  1. TECFIDERA [Suspect]
     Indication: MULTIPLE SCLEROSIS
     Route: 048
     Dates: start: 20130701
  2. TECFIDERA [Suspect]
     Indication: MULTIPLE SCLEROSIS
     Dates: start: 20130716
  3. ABILIFY [Concomitant]
  4. AMBIEN [Concomitant]
  5. CRESTOR [Concomitant]
  6. CYMBALTA [Concomitant]
  7. GABAPENTIN [Concomitant]
  8. LOSARTAN POTASSIUM [Concomitant]
  9. LUMIGAN [Concomitant]
  10. TRAZODONE [Concomitant]

REACTIONS (1)
  - Diarrhoea [Not Recovered/Not Resolved]
